FAERS Safety Report 12976785 (Version 3)
Quarter: 2017Q1

REPORT INFORMATION
  Report Type: Spontaneous
  Country: DE (occurrence: DE)
  Receive Date: 20161128
  Receipt Date: 20170109
  Transmission Date: 20170428
  Serious: Yes (Hospitalization)
  Sender: FDA-Public Use
  Company Number: PHHY2016DE159668

PATIENT
  Age: 85 Year
  Sex: Male

DRUGS (5)
  1. ENTRESTO [Suspect]
     Active Substance: SACUBITRIL\VALSARTAN
     Indication: CARDIAC FAILURE
     Dosage: 1 DF, BID
     Route: 048
     Dates: start: 20161027, end: 20161116
  2. ASPIRIN. [Concomitant]
     Active Substance: ASPIRIN
     Indication: CORONARY ARTERY DISEASE
     Dosage: 1 DF, QD
     Route: 048
     Dates: start: 2014
  3. BISOPROLOL [Concomitant]
     Active Substance: BISOPROLOL
     Indication: CARDIAC FAILURE
     Dosage: 1 DF, QD
     Route: 048
     Dates: start: 2014
  4. TORASEMIDE [Concomitant]
     Active Substance: TORSEMIDE
     Indication: CARDIAC FAILURE
     Dosage: 1 DF, QD
     Route: 048
     Dates: start: 2014
  5. SIMVASTATIN. [Concomitant]
     Active Substance: SIMVASTATIN
     Indication: PRODUCT USED FOR UNKNOWN INDICATION
     Dosage: 50 MG, QD
     Route: 065

REACTIONS (23)
  - Blood creatinine increased [Unknown]
  - Aspartate aminotransferase increased [Recovered/Resolved]
  - Pruritus [Recovered/Resolved]
  - Cough [Unknown]
  - Gamma-glutamyltransferase increased [Not Recovered/Not Resolved]
  - Cardiac failure [Recovered/Resolved]
  - Bacterial infection [Recovered/Resolved]
  - Joint swelling [Unknown]
  - Vomiting [Unknown]
  - White blood cell count increased [Unknown]
  - Viral infection [Recovered/Resolved]
  - C-reactive protein increased [Unknown]
  - Mean cell volume abnormal [Unknown]
  - Blood urea increased [Unknown]
  - Alanine aminotransferase increased [Recovered/Resolved]
  - Activated partial thromboplastin time prolonged [Unknown]
  - Bilirubin conjugated increased [Unknown]
  - Glomerular filtration rate decreased [Unknown]
  - Nausea [Recovered/Resolved]
  - Pyrexia [Unknown]
  - Sputum discoloured [Unknown]
  - International normalised ratio decreased [Unknown]
  - Blood urea nitrogen/creatinine ratio increased [Unknown]

NARRATIVE: CASE EVENT DATE: 20161110
